FAERS Safety Report 7502721-0 (Version None)
Quarter: 2011Q2

REPORT INFORMATION
  Report Type: 
  Country: None (occurrence: None)
  Receive Date: 20110525
  Receipt Date: 20110520
  Transmission Date: 20111010
  Serious: Yes (Death, Hospitalization)
  Sender: FDA-Public Use
  Company Number: PHHY2011DE16509

PATIENT
  Sex: Female

DRUGS (10)
  1. EXELON [Suspect]
     Indication: VASCULAR DEMENTIA
     Dosage: 4.6 MG/ 24 HOUR
     Route: 062
     Dates: start: 20110120
  2. LORAZEPAM [Suspect]
     Dosage: 1 DF PER DAY
     Route: 048
  3. NOVALGIN [Concomitant]
     Indication: PAIN
     Dosage: 30 DRP, BID
     Route: 048
  4. PANTOPRAZOLE [Concomitant]
     Indication: GASTRITIS
     Dosage: 40 MG, / DAY
     Route: 048
  5. ASPIRIN [Concomitant]
     Dosage: 100 MG, QD
  6. ARCOXIA [Concomitant]
     Indication: PAIN
     Dosage: 120 MG, QD
     Route: 048
     Dates: end: 20110205
  7. MCP [Concomitant]
     Indication: NAUSEA
     Dosage: 40 GTT/ DAY
  8. HALDOL [Concomitant]
     Dosage: 4 DRP, UNK
     Route: 048
     Dates: start: 20110203, end: 20110205
  9. VITAMIN B6 [Concomitant]
     Dosage: 1 DF, UNK
     Dates: end: 20110205
  10. KALINOR [Concomitant]
     Dosage: 1 DF, UNK
     Dates: end: 20110205

REACTIONS (14)
  - CARDIAC FAILURE [None]
  - AGGRESSION [None]
  - AORTIC ARTERIOSCLEROSIS [None]
  - HYPOPHAGIA [None]
  - PLEURAL EFFUSION [None]
  - SOMNOLENCE [None]
  - APATHY [None]
  - NEPHROGENIC ANAEMIA [None]
  - HEPATOMEGALY [None]
  - VASCULAR DEMENTIA [None]
  - RENAL FAILURE [None]
  - GENERAL PHYSICAL HEALTH DETERIORATION [None]
  - C-REACTIVE PROTEIN INCREASED [None]
  - COAGULATION TEST ABNORMAL [None]
